FAERS Safety Report 7973050-6 (Version None)
Quarter: 2011Q4

REPORT INFORMATION
  Report Type: 
  Country: None (occurrence: None)
  Receive Date: 20111209
  Receipt Date: 20111124
  Transmission Date: 20120403
  Serious: Yes (Other)
  Sender: FDA-Public Use
  Company Number: 2011P1012242

PATIENT
  Age: 75 Year
  Sex: Female
  Weight: 54.4316 kg

DRUGS (13)
  1. FENTANYL [Suspect]
     Indication: PANCREATIC CARCINOMA
     Dosage: 1 PATCH; Q3D; TDER
     Dates: start: 20111101
  2. NEXIUM [Concomitant]
  3. TREON [Concomitant]
  4. LORATADINE [Concomitant]
  5. ZOFRAN [Concomitant]
  6. SODIUM CHLORIDE [Concomitant]
  7. IRON [Concomitant]
  8. CALCIUM [Concomitant]
  9. METHYLIN [Concomitant]
  10. REGLAN [Concomitant]
  11. BENADRYL [Concomitant]
  12. POTASSIUM CHLORIDE [Concomitant]
  13. DILTIAZEM HCL [Concomitant]

REACTIONS (5)
  - ORAL FUNGAL INFECTION [None]
  - DIARRHOEA [None]
  - BACK PAIN [None]
  - FATIGUE [None]
  - MALAISE [None]
